FAERS Safety Report 5928246-1 (Version None)
Quarter: 2008Q4

REPORT INFORMATION
  Report Type: 
  Country: None (occurrence: None)
  Receive Date: 20081023
  Receipt Date: 20081014
  Transmission Date: 20090506
  Serious: Yes (Hospitalization)
  Sender: FDA-Public Use
  Company Number: BE-ELI_LILLY_AND_COMPANY-BE200810003223

PATIENT
  Age: 50 Year
  Sex: Female

DRUGS (1)
  1. GEMZAR [Suspect]
     Indication: BILE DUCT CANCER
     Dosage: UNK, WEEKLY (1/W)
     Route: 065
     Dates: start: 20080701, end: 20080901

REACTIONS (2)
  - INFLAMMATION [None]
  - INTERSTITIAL LUNG DISEASE [None]
